FAERS Safety Report 22079741 (Version 1)
Quarter: 2023Q1

REPORT INFORMATION
  Report Type: Spontaneous
  Country: US (occurrence: US)
  Receive Date: 20230309
  Receipt Date: 20230309
  Transmission Date: 20230418
  Serious: No
  Sender: FDA-Public Use
  Company Number: US-JNJFOC-20230306615

PATIENT
  Age: 73 Year
  Sex: Male
  Weight: 76.272 kg

DRUGS (3)
  1. XARELTO [Suspect]
     Active Substance: RIVAROXABAN
     Indication: Factor V deficiency
     Route: 048
     Dates: start: 2019
  2. XARELTO [Suspect]
     Active Substance: RIVAROXABAN
     Indication: Pulmonary embolism
  3. ASPIRIN [Suspect]
     Active Substance: ASPIRIN
     Indication: Product used for unknown indication
     Route: 065

REACTIONS (6)
  - Platelet count decreased [Unknown]
  - Increased tendency to bruise [Not Recovered/Not Resolved]
  - Wound haemorrhage [Recovered/Resolved]
  - Skin atrophy [Unknown]
  - Steroid therapy [Unknown]
  - Anxiety [Unknown]
